FAERS Safety Report 7756477-7 (Version None)
Quarter: 2011Q3

REPORT INFORMATION
  Report Type: 
  Country: None (occurrence: None)
  Receive Date: 20110916
  Receipt Date: 20100614
  Transmission Date: 20111222
  Serious: No
  Sender: FDA-Public Use
  Company Number: US-BAYER-201026709NA

PATIENT
  Age: 43 Year
  Sex: Female

DRUGS (2)
  1. MIRENA [Suspect]
     Indication: MENORRHAGIA
     Dosage: 20 ?G/D, CONT
     Route: 015
     Dates: start: 20090613
  2. MIRENA [Suspect]
     Indication: UTERINE LEIOMYOMA

REACTIONS (5)
  - MENORRHAGIA [None]
  - VAGINAL DISCHARGE [None]
  - LIBIDO DECREASED [None]
  - VAGINAL ODOUR [None]
  - HEADACHE [None]
